FAERS Safety Report 12445139 (Version 1)
Quarter: 2016Q2

REPORT INFORMATION
  Report Type: Spontaneous
  Country: IT (occurrence: IT)
  Receive Date: 20160607
  Receipt Date: 20160607
  Transmission Date: 20160815
  Serious: Yes (Other)
  Sender: FDA-Public Use
  Company Number: IT-TEVA-666003ACC

PATIENT

DRUGS (3)
  1. DYNASTAT [Suspect]
     Active Substance: PARECOXIB SODIUM
     Route: 065
  2. CELECOXIB. [Suspect]
     Active Substance: CELECOXIB
     Route: 065
  3. ETORICOXIB [Suspect]
     Active Substance: ETORICOXIB
     Route: 065

REACTIONS (4)
  - Skin reaction [Unknown]
  - Myocardial infarction [Unknown]
  - Thrombosis [Unknown]
  - Cardiovascular disorder [Unknown]
